FAERS Safety Report 19407573 (Version 1)
Quarter: 2021Q2

REPORT INFORMATION
  Report Type: Spontaneous
  Country: US (occurrence: US)
  Receive Date: 20210611
  Receipt Date: 20210611
  Transmission Date: 20210717
  Serious: Yes (Hospitalization)
  Sender: FDA-Public Use
  Company Number: US-ROCHE-2847740

PATIENT
  Age: 81 Year
  Sex: Male

DRUGS (3)
  1. ESBRIET [Suspect]
     Active Substance: PIRFENIDONE
     Indication: IDIOPATHIC PULMONARY FIBROSIS
     Route: 048
     Dates: start: 201805
  2. ALEVE [Concomitant]
     Active Substance: NAPROXEN SODIUM
     Indication: PAIN
  3. TYLENOL [Concomitant]
     Active Substance: ACETAMINOPHEN
     Indication: PAIN

REACTIONS (1)
  - Rib fracture [Unknown]

NARRATIVE: CASE EVENT DATE: 20210529
